FAERS Safety Report 4682808-0 (Version None)
Quarter: 2005Q2

REPORT INFORMATION
  Report Type: 
  Country: None (occurrence: None)
  Receive Date: 20050606
  Receipt Date: 20050404
  Transmission Date: 20051028
  Serious: Yes (Hospitalization)
  Sender: FDA-Public Use
  Company Number: 2005CG00675

PATIENT
  Age: 75 Year
  Sex: Female
  Weight: 85 kg

DRUGS (6)
  1. MOPRAL [Suspect]
     Route: 048
  2. INNOHEP [Suspect]
     Route: 058
     Dates: start: 20040701, end: 20040704
  3. APROVEL [Suspect]
     Route: 048
  4. VIOXX [Suspect]
     Route: 048
  5. ARIXTRA [Suspect]
     Route: 058
     Dates: start: 20040624, end: 20040630
  6. FUMAFER [Suspect]
     Route: 048

REACTIONS (2)
  - DEEP VEIN THROMBOSIS [None]
  - DRUG EFFECT DECREASED [None]
